FAERS Safety Report 7344616-1 (Version None)
Quarter: 2011Q1

REPORT INFORMATION
  Report Type: 
  Country: None (occurrence: None)
  Receive Date: 20110308
  Receipt Date: 20110308
  Transmission Date: 20110831
  Serious: Yes (Other)
  Sender: FDA-Public Use
  Company Number: None

PATIENT
  Age: 44 Year
  Sex: Female
  Weight: 55.3388 kg

DRUGS (1)
  1. LEVAQUIN [Suspect]
     Indication: SINUSITIS
     Dosage: 1 X 750 MG TABLET DAILY FOR 5 DAYS PO
     Route: 048
     Dates: start: 20101231, end: 20110104

REACTIONS (17)
  - MUSCULAR WEAKNESS [None]
  - GAIT DISTURBANCE [None]
  - ARTHRITIS [None]
  - NECK PAIN [None]
  - TRI-IODOTHYRONINE INCREASED [None]
  - BACK PAIN [None]
  - INSOMNIA [None]
  - ARTHRALGIA [None]
  - BONE PAIN [None]
  - THYROID DISORDER [None]
  - VIRAL INFECTION [None]
  - DAYDREAMING [None]
  - IMPAIRED WORK ABILITY [None]
  - TENDON DISORDER [None]
  - FEAR [None]
  - SLEEP DISORDER [None]
  - ABNORMAL DREAMS [None]
